FAERS Safety Report 9648543 (Version 2)
Quarter: 2014Q1

REPORT INFORMATION
  Report Type: Spontaneous
  Country: US (occurrence: US)
  Receive Date: 20131028
  Receipt Date: 20140129
  Transmission Date: 20141002
  Serious: No
  Sender: FDA-Public Use
  Company Number: US-009507513-1310USA012543

PATIENT
  Age: 88 Year
  Sex: Female

DRUGS (1)
  1. CLARITIN REDITABS [Suspect]
     Indication: RHINORRHOEA
     Dosage: UNK, UNKNOWN
     Route: 048
     Dates: start: 201307, end: 201312

REACTIONS (1)
  - Drug ineffective [Unknown]
